FAERS Safety Report 7184697-1 (Version None)
Quarter: 2010Q4

REPORT INFORMATION
  Report Type: 
  Country: None (occurrence: None)
  Receive Date: 20101222
  Receipt Date: 20101214
  Transmission Date: 20110411
  Serious: Yes (Hospitalization)
  Sender: FDA-Public Use
  Company Number: US-ACTELION-A-US2010-42342

PATIENT

DRUGS (2)
  1. BOSENTAN TABLET UNKNOWN US MG [Suspect]
     Indication: PULMONARY ARTERIAL HYPERTENSION
     Dosage: UNK
     Route: 048
     Dates: start: 20100301
  2. COUMADIN [Concomitant]

REACTIONS (6)
  - CHRONIC INFLAMMATORY DEMYELINATING POLYRADICULONEUROPATHY [None]
  - HYPOAESTHESIA [None]
  - INFLAMMATION [None]
  - OFF LABEL USE [None]
  - PAIN IN EXTREMITY [None]
  - PARAESTHESIA [None]
